FAERS Safety Report 25997962 (Version 1)
Quarter: 2025Q4

REPORT INFORMATION
  Report Type: Spontaneous
  Country: US (occurrence: US)
  Receive Date: 20251105
  Receipt Date: 20251105
  Transmission Date: 20260117
  Serious: No
  Sender: CELLTRION
  Company Number: US-CELLTRION INC.-2025US017632

PATIENT

DRUGS (1)
  1. ZYMFENTRA [Suspect]
     Active Substance: INFLIXIMAB-DYYB
     Indication: Crohn^s disease
     Dosage: 120 MG/ML - INJECT THE CONTENTS OF ONE DEVICE UNDER THE SKIN EVERY TWO WEEKS / 120 MG INJECTED SUBCU
     Route: 058
     Dates: start: 20240826

REACTIONS (2)
  - Coccydynia [Unknown]
  - Abscess [Unknown]
